FAERS Safety Report 24263470 (Version 2)
Quarter: 2024Q3

REPORT INFORMATION
  Report Type: Report from Study
  Country: US (occurrence: US)
  Receive Date: 20240829
  Receipt Date: 20240911
  Transmission Date: 20241017
  Serious: Yes (Other)
  Sender: TEVA
  Company Number: US-TEVA-VS-3236226

PATIENT

DRUGS (3)
  1. MELPHALAN [Suspect]
     Active Substance: MELPHALAN
     Indication: Retinoblastoma
     Dosage: DILUTED IN 20 TO 30ML OF SALINE SOLUTION AND THEN DELIVERED IN A PULSATILE MANNER OVER 30?MINUTES
     Route: 013
  2. HEPARIN [Concomitant]
     Active Substance: HEPARIN SODIUM
     Indication: Anticoagulant therapy
     Route: 065
  3. SALINE [Concomitant]
     Active Substance: SODIUM CHLORIDE
     Indication: Vehicle solution use
     Dosage: 20 TO 30ML OF SALINE SOLUTION DELIVERED IN A PULSATILE MANNER OVER 30 MINUTES
     Route: 013

REACTIONS (1)
  - Febrile neutropenia [Unknown]
